FAERS Safety Report 11057408 (Version 1)
Quarter: 2015Q2

REPORT INFORMATION
  Report Type: Report from Study
  Country: BE (occurrence: BE)
  Receive Date: 20150422
  Receipt Date: 20150422
  Transmission Date: 20150821
  Serious: Yes (Death)
  Sender: FDA-Public Use
  Company Number: BE-ABBVIE-15P-013-1379523-00

PATIENT
  Sex: Male

DRUGS (3)
  1. LEVODOPA/CARBIDOPA [Suspect]
     Active Substance: CARBIDOPA\LEVODOPA
     Dosage: DOSE CONTINUOUSLY MONITORED AND ADAPTED
     Route: 050
     Dates: start: 20090617, end: 20130716
  2. LEVODOPA/CARBIDOPA [Suspect]
     Active Substance: CARBIDOPA\LEVODOPA
     Dosage: AM = 1 ML, CD = 3.8 ML/H DURING 16H, ED = 2.5 ML, ND = 3.1 ML/H DURING 8H
     Route: 050
     Dates: start: 20130716, end: 20150422
  3. LEVODOPA/CARBIDOPA [Suspect]
     Active Substance: CARBIDOPA\LEVODOPA
     Indication: PARKINSON^S DISEASE
     Dosage: AM = 3 ML, CD = 3.3 ML/H DURING 16H, ED = 4 ML
     Route: 050
     Dates: start: 20071213, end: 20090617

REACTIONS (1)
  - Death [Fatal]
